FAERS Safety Report 9771197 (Version 3)
Quarter: 2014Q1

REPORT INFORMATION
  Report Type: Report from Study
  Country: TW (occurrence: TW)
  Receive Date: 20131218
  Receipt Date: 20140127
  Transmission Date: 20141002
  Serious: Yes (Hospitalization)
  Sender: FDA-Public Use
  Company Number: TW-009507513-1312TWN000820

PATIENT
  Age: 66 Year
  Sex: Male
  Weight: 66 kg

DRUGS (36)
  1. BLINDED SITAGLIPTIN PHOSPHATE [Suspect]
     Indication: TYPE 2 DIABETES MELLITUS
     Dosage: UNK
     Route: 048
     Dates: start: 20100611
  2. AUGMENTIN [Suspect]
     Indication: UPPER RESPIRATORY TRACT INFECTION
     Dosage: 2 GRAN DAILY
     Dates: start: 20101129, end: 20101205
  3. PREDNISOLONE [Suspect]
     Indication: CHRONIC OBSTRUCTIVE PULMONARY DISEASE
     Dosage: TOTAL DAILY DOSE 30 MG, TABLET
     Route: 048
     Dates: start: 20101218, end: 20101222
  4. PREDNISOLONE [Suspect]
     Dosage: TOTAL DAILY DOSE 20 MG, TABLET
     Route: 048
     Dates: start: 20101223, end: 20101230
  5. ESOMEPRAZOLE MAGNESIUM [Suspect]
     Indication: PROPHYLAXIS
     Dosage: TOTAL DAILY DOSE 40 MG
     Route: 048
     Dates: start: 20101222, end: 20101230
  6. SOLU-MEDROL [Suspect]
     Indication: CHRONIC OBSTRUCTIVE PULMONARY DISEASE
     Dosage: TOTAL DAILY DOSE 120 MG
     Route: 042
     Dates: start: 20101207, end: 20121210
  7. SOLU-MEDROL [Suspect]
     Dosage: TOTAL DAILY DOSE 80 MG
     Route: 042
     Dates: start: 20101211, end: 20121214
  8. SOLU-MEDROL [Suspect]
     Dosage: TOTAL DAILY DOSE 40 MG
     Route: 042
     Dates: start: 20101215, end: 20101218
  9. UNASYN (SULTAMICILLIN TOSYLATE) [Suspect]
     Indication: CHRONIC OBSTRUCTIVE PULMONARY DISEASE
     Dosage: TOTAL DAILY DOSE 4000 MG, Q6H
     Route: 042
     Dates: start: 20101207, end: 20101210
  10. ZITHROMAX [Suspect]
     Indication: CHRONIC OBSTRUCTIVE PULMONARY DISEASE
     Dosage: TOTAL DAILY DOSE 500 MG, QD
     Route: 048
     Dates: start: 20101207, end: 20101211
  11. AMINOPHYLLINE [Suspect]
     Indication: CHRONIC OBSTRUCTIVE PULMONARY DISEASE
     Dosage: STRENGTH:250 MG/10 ML/AMP 1000 MG; TOTAL DAILY DOSE 1000 MG
     Route: 042
     Dates: start: 20101208, end: 20101208
  12. CAMPHORATED OPIUM TINCTURE BP [Suspect]
     Indication: CHRONIC OBSTRUCTIVE PULMONARY DISEASE
     Dosage: TOTAL DAILY DOSE 4.8 ML
     Route: 048
     Dates: start: 20101209
  13. ANTIMONY POTASSIUM TARTRATE [Suspect]
     Indication: CHRONIC OBSTRUCTIVE PULMONARY DISEASE
     Dosage: TOTAL DAILY DOSE 9.6 MG
     Route: 048
     Dates: start: 20101209
  14. GLYCYRRHIZA KORSHINSKYI [Suspect]
     Indication: CHRONIC OBSTRUCTIVE PULMONARY DISEASE
     Dosage: TOTAL DAILY DOSE 4.8 ML
     Route: 048
     Dates: start: 20101209, end: 20101230
  15. TAZOCIN [Suspect]
     Indication: CHRONIC OBSTRUCTIVE PULMONARY DISEASE
     Dosage: TOTAL DAILY DOSE 16 GM
     Route: 042
     Dates: start: 20101211, end: 20101218
  16. MAGNESIUM OXIDE [Suspect]
     Indication: CONSTIPATION
     Dosage: 1500 MG DAILY
     Route: 048
     Dates: start: 20101211, end: 20101219
  17. LEVOFLOXACIN [Suspect]
     Indication: CHRONIC OBSTRUCTIVE PULMONARY DISEASE
     Dosage: TOTAL DAILY DOSE 500 MG
     Route: 048
     Dates: start: 20101218, end: 20101225
  18. GASCON (DIMETHICONE) [Suspect]
     Indication: CONSTIPATION
     Dosage: TOTAL DAILY DOSE 160 MG
     Route: 048
     Dates: start: 20101219, end: 20101222
  19. ATROVENT [Suspect]
     Indication: CHRONIC OBSTRUCTIVE PULMONARY DISEASE
     Dosage: TOTAL DAILY DOSE 2000 MCG
     Route: 055
     Dates: start: 20101207, end: 20101229
  20. ALPRALINE [Suspect]
     Indication: INSOMNIA
     Dosage: TOTAL DAILY DOSE 5MG
     Route: 048
     Dates: start: 20101213, end: 20101230
  21. BRICANYL [Suspect]
     Indication: CHRONIC OBSTRUCTIVE PULMONARY DISEASE
     Dosage: TOTAL DAILY DOSE 10 MG
     Route: 055
     Dates: start: 20101207, end: 20101208
  22. MUCOSOLVAN [Concomitant]
     Indication: CHRONIC OBSTRUCTIVE PULMONARY DISEASE
     Dosage: 180 MG DAILY
     Dates: start: 20080101
  23. PHYLLOCONTIN [Concomitant]
     Indication: CHRONIC OBSTRUCTIVE PULMONARY DISEASE
     Dosage: 450 MG DAILY
     Dates: start: 20080101
  24. VENTOLIN (ALBUTEROL) [Concomitant]
     Indication: CHRONIC OBSTRUCTIVE PULMONARY DISEASE
     Dosage: 200 MICROGRAM DAILY
     Dates: start: 20090702
  25. PLAVIX [Concomitant]
     Indication: CORONARY ARTERY DISEASE
     Dosage: 75 MG DAILY
     Dates: start: 20100108
  26. REGROW [Concomitant]
     Indication: CHRONIC OBSTRUCTIVE PULMONARY DISEASE
     Dosage: 120 MG DAILY
     Dates: start: 20091008
  27. NATRILIX [Concomitant]
     Indication: HYPERTENSION
     Dosage: 1.5 MG DAILY
     Dates: start: 20100611
  28. LIPITOR [Concomitant]
     Indication: HYPERLIPIDAEMIA
     Dosage: 10 MG DAILY
     Dates: start: 20100611
  29. PLENDIL [Concomitant]
     Indication: HYPERTENSION
     Dosage: 10 MG DAILY
     Dates: start: 20100514
  30. GLURENORM [Concomitant]
     Indication: DIABETES MELLITUS
     Dosage: 60 MG DAILY
     Dates: start: 20090316
  31. TRITACE [Concomitant]
     Indication: CORONARY ARTERY DISEASE
     Dosage: 10 MG DAILY
     Dates: start: 20100122
  32. ASPIRIN [Concomitant]
     Indication: CORONARY ARTERY DISEASE
     Dosage: 100 MG DAILY
     Dates: start: 20100122
  33. GLIBUDON [Concomitant]
     Indication: DIABETES MELLITUS
     Dosage: 1000 MG DAILY
     Dates: start: 20100122
  34. SINGULAIR [Concomitant]
     Indication: ASTHMA
     Dosage: 10 MG DAILY
     Route: 048
     Dates: start: 20090226
  35. ALLOPURINOL [Concomitant]
     Indication: HYPERURICAEMIA
     Dosage: 100 MG DAILY
     Dates: start: 20100927
  36. PREDONINE [Concomitant]
     Indication: CHRONIC OBSTRUCTIVE PULMONARY DISEASE
     Dosage: 5 MG DAILY
     Dates: start: 20100630

REACTIONS (1)
  - Chronic obstructive pulmonary disease [Recovered/Resolved]
